FAERS Safety Report 5495769-1 (Version None)
Quarter: 2007Q4

REPORT INFORMATION
  Report Type: 
  Country: None (occurrence: None)
  Receive Date: 20071025
  Receipt Date: 20061102
  Transmission Date: 20080405
  Serious: No
  Sender: FDA-Public Use
  Company Number: A0624058A

PATIENT
  Sex: Female

DRUGS (4)
  1. ADVAIR DISKUS 100/50 [Suspect]
     Indication: ASTHMA
     Route: 055
     Dates: start: 20050101
  2. ALBUTEROL [Suspect]
     Indication: ASTHMA
     Route: 055
  3. NASONEX [Suspect]
     Indication: ASTHMA
     Route: 045
  4. XOPENEX [Concomitant]

REACTIONS (2)
  - MUSCLE TWITCHING [None]
  - PHARMACEUTICAL PRODUCT COMPLAINT [None]
